FAERS Safety Report 6731290-8 (Version None)
Quarter: 2010Q2

REPORT INFORMATION
  Report Type: 
  Country: None (occurrence: None)
  Receive Date: 20100517
  Receipt Date: 20100517
  Transmission Date: 20101027
  Serious: No
  Sender: FDA-Public Use
  Company Number: None

PATIENT
  Age: 53 Year
  Sex: Male
  Weight: 77.1115 kg

DRUGS (1)
  1. AVELOX [Suspect]
     Indication: SINUSITIS
     Dosage: 400MG 1 DAILY FOR 10 DAY PO
     Route: 048
     Dates: start: 20100510, end: 20100511

REACTIONS (12)
  - BODY TEMPERATURE DECREASED [None]
  - DEPRESSED MOOD [None]
  - DISTURBANCE IN ATTENTION [None]
  - FEELING JITTERY [None]
  - HEART RATE INCREASED [None]
  - HYPERTENSION [None]
  - INSOMNIA [None]
  - MOVEMENT DISORDER [None]
  - PAIN IN EXTREMITY [None]
  - PARAESTHESIA [None]
  - TENDON PAIN [None]
  - TREMOR [None]
